FAERS Safety Report 10171166 (Version 1)
Quarter: 2014Q2

REPORT INFORMATION
  Report Type: Spontaneous
  Country: US (occurrence: US)
  Receive Date: 20140514
  Receipt Date: 20140514
  Transmission Date: 20141212
  Serious: No
  Sender: FDA-Public Use
  Company Number: US-TEVA-481537USA

PATIENT
  Age: 32 Year
  Sex: Female
  Weight: 61.29 kg

DRUGS (2)
  1. PLAN B ONE-STEP [Suspect]
     Indication: POST COITAL CONTRACEPTION
     Dosage: 1.5 MILLIGRAM DAILY;
     Route: 048
     Dates: start: 20140421, end: 20140421
  2. BAYER EXTRA STRENGTH BACK AND BODY PAIN [Concomitant]
     Indication: PAIN

REACTIONS (3)
  - Back pain [Recovered/Resolved]
  - Menstruation irregular [Not Recovered/Not Resolved]
  - Abdominal pain [Not Recovered/Not Resolved]
